FAERS Safety Report 9286996 (Version 3)
Quarter: 2014Q1

REPORT INFORMATION
  Report Type: Spontaneous
  Country: TR (occurrence: None)
  Receive Date: 20130508
  Receipt Date: 20140129
  Transmission Date: 20141002
  Serious: Yes (Other)
  Sender: FDA-Public Use
  Company Number: KAD201304-000504

PATIENT
  Age: 44 Year
  Sex: Male

DRUGS (1)
  1. RIBAVIRIN (RIBAVIRIN) [Suspect]
     Indication: CONGO-CRIMEAN HAEMORRHAGIC FEVER

REACTIONS (2)
  - Sepsis [None]
  - Off label use [None]
